FAERS Safety Report 6344322-6 (Version None)
Quarter: 2009Q3

REPORT INFORMATION
  Report Type: 
  Country: None (occurrence: None)
  Receive Date: 20090903
  Receipt Date: 20090820
  Transmission Date: 20100115
  Serious: Yes (Death, Hospitalization, Other)
  Sender: FDA-Public Use
  Company Number: 2009AL000346

PATIENT
  Age: 55 Year
  Sex: Male
  Weight: 115.2136 kg

DRUGS (28)
  1. DIGOXIN [Suspect]
     Indication: CARDIAC FAILURE CONGESTIVE
     Dosage: 0.125MG, DAILY, PO
     Route: 048
  2. AMIODARONE HCL [Concomitant]
  3. AMLODIPINE [Concomitant]
  4. BUPROPION HCL [Concomitant]
  5. CARVEDILOL [Concomitant]
  6. OXYCODONE HCL AND ACETAMINOPHEN [Concomitant]
  7. FLEXERIL [Concomitant]
  8. LASIX [Concomitant]
  9. LISINOPRIL [Concomitant]
  10. MIRAPEX [Concomitant]
  11. POTASSIUM CHLORIDE [Concomitant]
  12. SPIRIVA [Concomitant]
  13. VIAGRA [Concomitant]
  14. WARFARIN SODIUM [Concomitant]
  15. .. [Concomitant]
  16. XANAX [Concomitant]
  17. ZAROXOLYN [Concomitant]
  18. ATACAND [Concomitant]
  19. OXYCODONE HCL AND ACETAMINOPHEN [Concomitant]
  20. PERCOCET [Concomitant]
  21. LIDODERM [Concomitant]
  22. COREG [Concomitant]
  23. PRINIVIL [Concomitant]
  24. MELOXICAM [Concomitant]
  25. FUROSEMIDE [Concomitant]
  26. ALPRAZOLAM [Concomitant]
  27. BUPROPION HCL [Concomitant]
  28. CYCLOBENZAPRINE [Concomitant]

REACTIONS (32)
  - ASTHENIA [None]
  - ATELECTASIS [None]
  - ATRIAL FIBRILLATION [None]
  - BLOOD CREATININE INCREASED [None]
  - BRADYCARDIA [None]
  - BUNDLE BRANCH BLOCK LEFT [None]
  - CARDIAC FAILURE CONGESTIVE [None]
  - CARDIAC MURMUR [None]
  - CHEST DISCOMFORT [None]
  - COLD SWEAT [None]
  - CONGESTIVE CARDIOMYOPATHY [None]
  - DIASTOLIC DYSFUNCTION [None]
  - DYSPNOEA EXERTIONAL [None]
  - EJECTION FRACTION DECREASED [None]
  - FATIGUE [None]
  - HAEMATOCHEZIA [None]
  - HEART RATE IRREGULAR [None]
  - HYPERTENSION [None]
  - LEFT VENTRICULAR DYSFUNCTION [None]
  - MALAISE [None]
  - OBESITY [None]
  - OEDEMA PERIPHERAL [None]
  - PALPITATIONS [None]
  - PROCEDURAL COMPLICATION [None]
  - QRS AXIS ABNORMAL [None]
  - SICK SINUS SYNDROME [None]
  - THERAPEUTIC AGENT TOXICITY [None]
  - THYROID DISORDER [None]
  - VENTRICULAR HYPOKINESIA [None]
  - VISUAL IMPAIRMENT [None]
  - WEIGHT DECREASED [None]
  - WEIGHT INCREASED [None]
